FAERS Safety Report 4355516-3 (Version None)
Quarter: 2004Q2

REPORT INFORMATION
  Report Type: 
  Country: None (occurrence: None)
  Receive Date: 20040503
  Receipt Date: 20030612
  Transmission Date: 20050107
  Serious: Yes (Hospitalization)
  Sender: FDA-Public Use
  Company Number: PHEH2003US04879

PATIENT
  Age: 40 Year
  Sex: Male
  Weight: 88.4 kg

DRUGS (3)
  1. LOTREL [Suspect]
     Indication: HYPERTENSION
     Dosage: SEE IMAGE
     Dates: start: 20030131, end: 20030505
  2. LOTREL [Suspect]
     Indication: HYPERTENSION
     Dosage: SEE IMAGE
     Dates: start: 20030506, end: 20030518
  3. NEXIUM [Concomitant]

REACTIONS (1)
  - ANGIONEUROTIC OEDEMA [None]
